FAERS Safety Report 15348160 (Version 10)
Quarter: 2019Q4

REPORT INFORMATION
  Report Type: Report from Study
  Country: FR (occurrence: FR)
  Receive Date: 20180904
  Receipt Date: 20191205
  Transmission Date: 20200122
  Serious: Yes (Other)
  Sender: FDA-Public Use
  Company Number: PHHY2018FR069806

PATIENT
  Age: 39 Year
  Sex: Female

DRUGS (3)
  1. SIGNIFOR [Suspect]
     Active Substance: PASIREOTIDE
     Indication: PITUITARY-DEPENDENT CUSHING^S SYNDROME
     Dosage: 1.5 MG, QD (DAILY)
     Route: 058
     Dates: start: 20171206
  2. SIGNIFOR [Suspect]
     Active Substance: PASIREOTIDE
     Dosage: UNK
     Route: 065
     Dates: start: 20171204, end: 20171205
  3. SIGNIFOR [Suspect]
     Active Substance: PASIREOTIDE
     Dosage: UNK
     Route: 065
     Dates: start: 201903

REACTIONS (6)
  - Calcium deficiency [Unknown]
  - Diabetes mellitus [Recovered/Resolved]
  - Cortisol deficiency [Recovered/Resolved]
  - Vitamin D deficiency [Unknown]
  - Nausea [Unknown]
  - Sciatica [Unknown]

NARRATIVE: CASE EVENT DATE: 20171206
